FAERS Safety Report 13557918 (Version 3)
Quarter: 2017Q3

REPORT INFORMATION
  Report Type: Spontaneous
  Country: JP (occurrence: JP)
  Receive Date: 20170518
  Receipt Date: 20170719
  Transmission Date: 20171127
  Serious: Yes (Other)
  Sender: FDA-Public Use
  Company Number: JP-VIIV HEALTHCARE LIMITED-JP2017JPN071859

PATIENT
  Age: 5 Decade
  Sex: Female

DRUGS (3)
  1. CELSENTRI [Suspect]
     Active Substance: MARAVIROC
     Dosage: UNK
     Route: 048
  2. PREZISTA [Concomitant]
     Active Substance: DARUNAVIR ETHANOLATE
     Dosage: UNK
  3. TIVICAY [Suspect]
     Active Substance: DOLUTEGRAVIR SODIUM
     Dosage: UNK, BID
     Route: 048

REACTIONS (4)
  - Drug resistance [Unknown]
  - Blood HIV RNA increased [Recovering/Resolving]
  - Treatment noncompliance [Unknown]
  - Drug dose omission [Unknown]
